FAERS Safety Report 6462674-3 (Version None)
Quarter: 2009Q4

REPORT INFORMATION
  Report Type: 
  Country: None (occurrence: None)
  Receive Date: 20091130
  Receipt Date: 20091013
  Transmission Date: 20100525
  Serious: No
  Sender: FDA-Public Use
  Company Number: US-AMGEN-KDL369436

PATIENT
  Sex: Male
  Weight: 99 kg

DRUGS (6)
  1. ENBREL [Suspect]
     Indication: DRUG USE FOR UNKNOWN INDICATION
     Route: 058
  2. ULTRAM [Concomitant]
  3. CITRACAL [Concomitant]
  4. MOBIC [Concomitant]
  5. SULFASALAZIN [Concomitant]
  6. NORCO [Concomitant]

REACTIONS (1)
  - INJECTION SITE HAEMATOMA [None]
